FAERS Safety Report 18796055 (Version 5)
Quarter: 2021Q2

REPORT INFORMATION
  Report Type: Report from Study
  Country: US (occurrence: US)
  Receive Date: 20210127
  Receipt Date: 20210412
  Transmission Date: 20210717
  Serious: Yes (Hospitalization, Other)
  Sender: FDA-Public Use
  Company Number: NVSC2021US008044

PATIENT
  Age: 73 Year
  Sex: Male
  Weight: 94.8 kg

DRUGS (4)
  1. ELIQUIS [Concomitant]
     Active Substance: APIXABAN
     Indication: CARDIAC FAILURE CHRONIC
     Dosage: UNK
     Route: 065
  2. METOPROLOL. [Concomitant]
     Active Substance: METOPROLOL
     Indication: CARDIAC FAILURE CHRONIC
     Dosage: UNK
     Route: 065
  3. ENTRESTO [Suspect]
     Active Substance: SACUBITRIL\VALSARTAN
     Indication: CARDIAC FAILURE CHRONIC
     Dosage: 50 MG, BID (24/26 MG)
     Route: 048
     Dates: start: 20200108
  4. ENTRESTO [Suspect]
     Active Substance: SACUBITRIL\VALSARTAN
     Dosage: 100 MG  (49/51MG), UNKNOWN
     Route: 065
     Dates: start: 20210205

REACTIONS (8)
  - Idiopathic pulmonary fibrosis [Unknown]
  - Fluid retention [Recovering/Resolving]
  - Cardiac failure [Unknown]
  - Lung disorder [Unknown]
  - Cerebrovascular accident [Unknown]
  - Oedema [Recovering/Resolving]
  - Swelling [Unknown]
  - Atrial fibrillation [Unknown]

NARRATIVE: CASE EVENT DATE: 20200810
